FAERS Safety Report 8386968-X (Version None)
Quarter: 2012Q2

REPORT INFORMATION
  Report Type: 
  Country: None (occurrence: None)
  Receive Date: 20120523
  Receipt Date: 20120515
  Transmission Date: 20120825
  Serious: Yes (Life-Threatening, Hospitalization)
  Sender: FDA-Public Use
  Company Number: PT-008085

PATIENT
  Age: 78 Year
  Sex: Male

DRUGS (14)
  1. FIRMAGON [Suspect]
     Indication: PROSTATE CANCER METASTATIC
     Dosage: (240 MG QD SUBCUTANEOUS) , (80 MG 1X/MONTH SUBCUTANEOUS),
     Route: 058
     Dates: start: 20120305, end: 20120305
  2. FIRMAGON [Suspect]
     Indication: PROSTATE CANCER METASTATIC
     Dosage: (240 MG QD SUBCUTANEOUS) , (80 MG 1X/MONTH SUBCUTANEOUS),
     Route: 058
     Dates: start: 20120403
  3. FIRMAGON [Suspect]
  4. ESTRAMUSTINE PHOSPHATE SODIUM  (ESTRAMUSTINE ) 140 MG [Suspect]
     Indication: PROSTATE CANCER METASTATIC
     Dosage: (280 MG TID ORAL)
     Route: 048
     Dates: start: 20120201, end: 20120214
  5. CALCIUM CARBONATE [Concomitant]
  6. BICALUTAMIDE [Concomitant]
  7. LISINOPRIL [Concomitant]
  8. BISOPROLOL FUMARATE [Concomitant]
  9. ESOMEPRAZOLE MAGNESIUM [Concomitant]
  10. ALLOPURINOL [Concomitant]
  11. ACETYLSALICYLIC ACID SRT [Concomitant]
  12. NEUPOGEN [Concomitant]
  13. CALCITRIOL [Concomitant]
  14. DARBEPOETIN ALFA [Concomitant]

REACTIONS (7)
  - TOXICITY TO VARIOUS AGENTS [None]
  - NEUTROPENIA [None]
  - PYREXIA [None]
  - DEVICE RELATED INFECTION [None]
  - HEPATIC NECROSIS [None]
  - THROMBOCYTOPENIA [None]
  - PUNCTURE SITE HAEMORRHAGE [None]
